FAERS Safety Report 13817498 (Version 1)
Quarter: 2017Q3

REPORT INFORMATION
  Report Type: Spontaneous
  Country: US (occurrence: US)
  Receive Date: 20170731
  Receipt Date: 20170731
  Transmission Date: 20171127
  Serious: Yes (Hospitalization)
  Sender: FDA-Public Use
  Company Number: US-BEH-2017082312

PATIENT
  Sex: Female
  Weight: 95.24 kg

DRUGS (23)
  1. LIDOCAINE. [Concomitant]
     Active Substance: LIDOCAINE
  2. EPINEPHRINE. [Concomitant]
     Active Substance: EPINEPHRINE
  3. SYMBICORT [Concomitant]
     Active Substance: BUDESONIDE\FORMOTEROL FUMARATE DIHYDRATE
  4. DIPHENHYDRAMINE. [Concomitant]
     Active Substance: DIPHENHYDRAMINE
  5. SINGULAIR [Concomitant]
     Active Substance: MONTELUKAST SODIUM
  6. CLONAZEPAM. [Concomitant]
     Active Substance: CLONAZEPAM
  7. SERTRALINE [Concomitant]
     Active Substance: SERTRALINE HYDROCHLORIDE
  8. VITAMIN D3 [Concomitant]
     Active Substance: CHOLECALCIFEROL
  9. ABILIFY [Concomitant]
     Active Substance: ARIPIPRAZOLE
  10. ZEMAIRA [Suspect]
     Active Substance: .ALPHA.1-PROTEINASE INHIBITOR HUMAN
     Dosage: UNK
     Route: 042
  11. ASPIRIN (E.C.) [Concomitant]
     Active Substance: ASPIRIN
  12. SODIUM CHLORIDE. [Concomitant]
     Active Substance: SODIUM CHLORIDE
  13. OXCARBAZEPINE. [Concomitant]
     Active Substance: OXCARBAZEPINE
  14. FENOFIBRATE. [Concomitant]
     Active Substance: FENOFIBRATE
  15. BUSPIRONE [Concomitant]
     Active Substance: BUSPIRONE HYDROCHLORIDE
  16. PANTOPRAZOLE [Concomitant]
     Active Substance: PANTOPRAZOLE
  17. ZEMAIRA [Suspect]
     Active Substance: .ALPHA.1-PROTEINASE INHIBITOR HUMAN
     Indication: ALPHA-1 ANTI-TRYPSIN DEFICIENCY
     Dosage: 60 MG/KG, QW
     Route: 042
     Dates: start: 20160829
  18. HEPARIN [Concomitant]
     Active Substance: HEPARIN SODIUM
  19. ALBUTEROL                          /00139501/ [Concomitant]
     Active Substance: ALBUTEROL
  20. SILYBUM MARIANUM EXTRACT [Concomitant]
     Active Substance: MILK THISTLE
  21. VENTOLIN [Concomitant]
     Active Substance: ALBUTEROL SULFATE
  22. FISH OIL [Concomitant]
     Active Substance: FISH OIL
  23. FLONASE [Concomitant]
     Active Substance: FLUTICASONE PROPIONATE

REACTIONS (1)
  - Chest pain [Unknown]
